FAERS Safety Report 12524118 (Version 1)
Quarter: 2016Q3

REPORT INFORMATION
  Report Type: Spontaneous
  Country: SE (occurrence: SE)
  Receive Date: 20160704
  Receipt Date: 20160704
  Transmission Date: 20161109
  Serious: Yes (Life-Threatening, Disabling)
  Sender: FDA-Public Use
  Company Number: SE-ABBVIE-16K-150-1664276-00

PATIENT
  Age: 50 Year
  Sex: Female

DRUGS (18)
  1. OMEPRAZOLE. [Interacting]
     Active Substance: OMEPRAZOLE
     Indication: PRODUCT USED FOR UNKNOWN INDICATION
     Route: 065
  2. KALEORID [Interacting]
     Active Substance: POTASSIUM CHLORIDE
     Indication: PRODUCT USED FOR UNKNOWN INDICATION
     Route: 065
  3. DUODOPA [Suspect]
     Active Substance: CARBIDOPA\LEVODOPA
     Indication: PARKINSON^S DISEASE
     Route: 050
     Dates: start: 20151130
  4. SERTRALINE [Interacting]
     Active Substance: SERTRALINE HYDROCHLORIDE
     Indication: ANXIETY
  5. OPRYMEA [Interacting]
     Active Substance: PRAMIPEXOLE DIHYDROCHLORIDE
     Indication: PARKINSON^S DISEASE
     Route: 065
     Dates: start: 20151130, end: 20160408
  6. BEHEPAN [Concomitant]
     Active Substance: HYDROXOCOBALAMIN
     Indication: PRODUCT USED FOR UNKNOWN INDICATION
  7. FUROSEMIDE. [Interacting]
     Active Substance: FUROSEMIDE
     Indication: OEDEMA
     Route: 065
  8. SERTRALINE [Interacting]
     Active Substance: SERTRALINE HYDROCHLORIDE
     Indication: DEPRESSION
     Dosage: 1 TABLET IN THE MORNING
     Route: 048
     Dates: start: 20160517, end: 20160605
  9. FOLACIN [Interacting]
     Active Substance: FOLIC ACID
     Indication: DOPAMINERGIC DRUG THERAPY
     Route: 065
  10. HYDROCHLOROTHIAZIDE. [Interacting]
     Active Substance: HYDROCHLOROTHIAZIDE
     Indication: OEDEMA PERIPHERAL
     Route: 065
     Dates: start: 2009, end: 20160108
  11. MAGNESIUM [Interacting]
     Active Substance: MAGNESIUM
     Indication: PRODUCT USED FOR UNKNOWN INDICATION
     Route: 065
  12. DEVITRE [Interacting]
     Active Substance: CHOLECALCIFEROL
     Indication: VITAMIN D DEFICIENCY
     Route: 065
     Dates: end: 20160607
  13. CARBIDOPA/LEVODOPA [Interacting]
     Active Substance: CARBIDOPA\LEVODOPA
     Indication: PARKINSON^S DISEASE
     Dosage: 2 TABLETS AT BEDTIME, FORM STRENGTH 25MG/100MG
     Route: 048
     Dates: start: 20121103
  14. ORALOVITE [Interacting]
     Active Substance: ASCORBIC ACID\NIACINAMIDE\PYRIDOXINE\RIBOFLAVIN\THIAMINE
     Indication: DOPAMINERGIC DRUG THERAPY
     Route: 048
     Dates: start: 20151130, end: 20160606
  15. VITAMIN D [Concomitant]
     Active Substance: CHOLECALCIFEROL
     Indication: PRODUCT USED FOR UNKNOWN INDICATION
  16. SELEGILINE [Interacting]
     Active Substance: SELEGILINE
     Indication: PARKINSON^S DISEASE
     Route: 048
     Dates: start: 20121103, end: 20160601
  17. MIRTAZAPINE. [Interacting]
     Active Substance: MIRTAZAPINE
     Indication: PRODUCT USED FOR UNKNOWN INDICATION
     Dosage: TWO TABLETS
     Route: 048
     Dates: start: 20150324, end: 20160605
  18. BETOLVIDON [Interacting]
     Active Substance: CYANOCOBALAMIN
     Indication: DOPAMINERGIC DRUG THERAPY
     Route: 065
     Dates: start: 20151130, end: 20160606

REACTIONS (20)
  - Toxicity to various agents [Recovered/Resolved]
  - Metabolic disorder [Unknown]
  - Hunger [Recovered/Resolved]
  - Hyponatraemia [Recovered/Resolved]
  - Drug interaction [Unknown]
  - Depression [Recovered/Resolved]
  - Drug dependence [Unknown]
  - Temperature intolerance [Recovered/Resolved]
  - Hyperhidrosis [Recovered/Resolved]
  - Hypopnoea [Recovered/Resolved]
  - Myalgia [Recovered/Resolved]
  - Drug ineffective [Recovered/Resolved]
  - Hypomagnesaemia [Recovered/Resolved]
  - Activities of daily living impaired [Unknown]
  - Confusional state [Recovered/Resolved]
  - Anxiety [Recovered/Resolved]
  - Rhabdomyolysis [Recovered/Resolved]
  - Panic attack [Recovered/Resolved]
  - Neuroleptic malignant syndrome [Recovered/Resolved]
  - Dyspnoea [Recovered/Resolved]

NARRATIVE: CASE EVENT DATE: 2015
